FAERS Safety Report 17049356 (Version 1)
Quarter: 2019Q4

REPORT INFORMATION
  Report Type: Spontaneous
  Country: IE (occurrence: IE)
  Receive Date: 20191119
  Receipt Date: 20191119
  Transmission Date: 20200122
  Serious: Yes (Death, Hospitalization, Other)
  Sender: FDA-Public Use
  Company Number: IE-JNJFOC-20191114511

PATIENT
  Age: 61 Year
  Sex: Male

DRUGS (7)
  1. ALLOPURINOL. [Suspect]
     Active Substance: ALLOPURINOL
     Indication: PRODUCT USED FOR UNKNOWN INDICATION
     Route: 065
  2. RITUXIMAB. [Suspect]
     Active Substance: RITUXIMAB
     Indication: MANTLE CELL LYMPHOMA
     Route: 065
  3. VENETOCLAX. [Suspect]
     Active Substance: VENETOCLAX
     Indication: MANTLE CELL LYMPHOMA
     Route: 065
  4. SEPTRIN [Suspect]
     Active Substance: SULFAMETHOXAZOLE\TRIMETHOPRIM
     Indication: PRODUCT USED FOR UNKNOWN INDICATION
     Route: 065
  5. IMBRUVICA [Suspect]
     Active Substance: IBRUTINIB
     Indication: MANTLE CELL LYMPHOMA
     Route: 048
  6. OBINUTUZUMAB. [Suspect]
     Active Substance: OBINUTUZUMAB
     Indication: MANTLE CELL LYMPHOMA
     Route: 065
  7. PREDNISOLONE. [Concomitant]
     Active Substance: PREDNISOLONE

REACTIONS (6)
  - Lactic acidosis [Unknown]
  - Product use issue [Unknown]
  - Drug reaction with eosinophilia and systemic symptoms [Unknown]
  - Mantle cell lymphoma refractory [Fatal]
  - Off label use [Unknown]
  - Therapeutic response decreased [Unknown]
